FAERS Safety Report 24342130 (Version 1)
Quarter: 2024Q3

REPORT INFORMATION
  Report Type: Report from Study
  Country: CA (occurrence: CA)
  Receive Date: 20240920
  Receipt Date: 20240920
  Transmission Date: 20241017
  Serious: Yes (Death)
  Sender: CSL BEHRING
  Company Number: CA-BEH-2023154549

PATIENT
  Age: 78 Year
  Sex: Female
  Weight: 59 kg

DRUGS (1)
  1. HIZENTRA [Suspect]
     Active Substance: HUMAN IMMUNOGLOBULIN G
     Indication: Primary immunodeficiency syndrome
     Dosage: 4 G, BIW
     Route: 065
     Dates: start: 20160415

REACTIONS (2)
  - Death [Fatal]
  - Malaise [Unknown]
